FAERS Safety Report 13651008 (Version 1)
Quarter: 2017Q2

REPORT INFORMATION
  Report Type: Report from Study
  Country: AU (occurrence: AU)
  Receive Date: 20170614
  Receipt Date: 20170614
  Transmission Date: 20170830
  Serious: Yes (Other)
  Sender: FDA-Public Use
  Company Number: AU-REGENERON PHARMACEUTICALS, INC.-2017-16928

PATIENT

DRUGS (1)
  1. EYLEA [Suspect]
     Active Substance: AFLIBERCEPT
     Indication: NEOVASCULAR AGE-RELATED MACULAR DEGENERATION
     Dosage: Q8WK, BOTH EYES
     Dates: start: 201703

REACTIONS (6)
  - Visual impairment [Recovered/Resolved]
  - Fear of injection [Unknown]
  - Depression suicidal [Unknown]
  - Apathy [Unknown]
  - Nervousness [Unknown]
  - Fear [Unknown]
